FAERS Safety Report 5625961-4 (Version None)
Quarter: 2008Q1

REPORT INFORMATION
  Report Type: 
  Country: None (occurrence: None)
  Receive Date: 20080214
  Receipt Date: 20080211
  Transmission Date: 20080703
  Serious: Yes (Hospitalization, Disabling)
  Sender: FDA-Public Use
  Company Number: B0484745A

PATIENT
  Age: 43 Year

DRUGS (1)
  1. NIQUITIN CQ CLEAR 7MG [Suspect]
     Indication: EX-SMOKER
     Route: 062
     Dates: start: 20061015, end: 20070416

REACTIONS (10)
  - APPLICATION SITE ERYTHEMA [None]
  - APPLICATION SITE PAIN [None]
  - ECZEMA [None]
  - ERYTHEMA [None]
  - HYPERAESTHESIA [None]
  - INFECTION [None]
  - NOSOCOMIAL INFECTION [None]
  - PHARMACEUTICAL PRODUCT COMPLAINT [None]
  - STAPHYLOCOCCAL INFECTION [None]
  - WEIGHT INCREASED [None]
